FAERS Safety Report 14236065 (Version 1)
Quarter: 2017Q4

REPORT INFORMATION
  Report Type: Spontaneous
  Country: FR (occurrence: FR)
  Receive Date: 20171129
  Receipt Date: 20171129
  Transmission Date: 20180321
  Serious: Yes (Other)
  Sender: FDA-Public Use
  Company Number: FR-MERCK KGAA-2036249

PATIENT
  Age: 72 Year
  Sex: Female

DRUGS (1)
  1. NOVOTHYROX [Suspect]
     Active Substance: LEVOTHYROXINE SODIUM
     Indication: THYROID DISORDER
     Dates: start: 201709

REACTIONS (7)
  - Angina pectoris [None]
  - Palpitations [None]
  - Weight increased [None]
  - Headache [None]
  - Muscle spasms [None]
  - Disturbance in attention [None]
  - Abdominal pain [None]

NARRATIVE: CASE EVENT DATE: 2017
